FAERS Safety Report 15007312 (Version 1)
Quarter: 2018Q2

REPORT INFORMATION
  Report Type: Spontaneous
  Country: CN (occurrence: CN)
  Receive Date: 20180613
  Receipt Date: 20180613
  Transmission Date: 20180711
  Serious: Yes (Other)
  Sender: FDA-Public Use
  Company Number: CN-VALIDUS PHARMACEUTICALS LLC-CN-2017VAL001409

PATIENT

DRUGS (3)
  1. ROCALTROL [Suspect]
     Active Substance: CALCITRIOL
     Indication: HYPOPARATHYROIDISM
     Dosage: 0.25 ?G, QD
     Route: 048
     Dates: start: 2009, end: 2012
  2. ROCALTROL [Suspect]
     Active Substance: CALCITRIOL
     Dosage: ADJUSTED MEDICINE MON, WED, FRI SUN 0.25UG /DAY TUES, THUR SAT 0.5UG /D
     Route: 048
     Dates: start: 2012, end: 2016
  3. ROCALTROL [Suspect]
     Active Substance: CALCITRIOL
     Dosage: 0.5 ?G, QD
     Route: 048
     Dates: start: 2016, end: 20170928

REACTIONS (7)
  - Off label use [Unknown]
  - Intentional product misuse [Unknown]
  - Progesterone decreased [Unknown]
  - Maternal exposure during pregnancy [Unknown]
  - Blood calcium increased [Recovered/Resolved]
  - Premature rupture of membranes [Unknown]
  - Hypoaesthesia [Not Recovered/Not Resolved]
